FAERS Safety Report 23124098 (Version 1)
Quarter: 2023Q4

REPORT INFORMATION
  Report Type: Spontaneous
  Country: US (occurrence: None)
  Receive Date: 20231027
  Receipt Date: 20231027
  Transmission Date: 20240110
  Serious: Yes (Life-Threatening, Hospitalization)
  Sender: FDA-Public Use
  Company Number: None

PATIENT
  Age: 28 Year
  Sex: Female
  Weight: 58.5 kg

DRUGS (4)
  1. LAMICTAL [Suspect]
     Active Substance: LAMOTRIGINE
     Indication: Affective disorder
     Dates: start: 20190725, end: 20190816
  2. LAMICTAL [Suspect]
     Active Substance: LAMOTRIGINE
     Indication: Bipolar II disorder
  3. QUETIAPINE [Concomitant]
     Active Substance: QUETIAPINE
  4. FISH OIL [Concomitant]
     Active Substance: FISH OIL

REACTIONS (8)
  - Stevens-Johnson syndrome [None]
  - Toxic epidermal necrolysis [None]
  - Respiratory failure [None]
  - Hallucination [None]
  - Delirium [None]
  - Nightmare [None]
  - Sleep disorder [None]
  - Staphylococcal infection [None]

NARRATIVE: CASE EVENT DATE: 20190816
